FAERS Safety Report 8104477-X (Version None)
Quarter: 2012Q1

REPORT INFORMATION
  Report Type: 
  Country: None (occurrence: None)
  Receive Date: 20120130
  Receipt Date: 20120123
  Transmission Date: 20120608
  Serious: Yes (Hospitalization)
  Sender: FDA-Public Use
  Company Number: US-JNJFOC-20120101778

PATIENT

DRUGS (1)
  1. NUCYNTA [Suspect]
     Indication: PAIN
     Route: 065

REACTIONS (3)
  - DISORIENTATION [None]
  - CONFUSIONAL STATE [None]
  - UNRESPONSIVE TO STIMULI [None]
